FAERS Safety Report 10956464 (Version 1)
Quarter: 2015Q1

REPORT INFORMATION
  Report Type: Spontaneous
  Country: CN (occurrence: CN)
  Receive Date: 20150326
  Receipt Date: 20150326
  Transmission Date: 20150721
  Serious: Yes (Other)
  Sender: FDA-Public Use
  Company Number: CN-GILEAD-2014-0127746

PATIENT
  Age: 41 Year
  Sex: Male

DRUGS (6)
  1. HEPSERA [Suspect]
     Active Substance: ADEFOVIR DIPIVOXIL
     Indication: HEPATITIS B
     Dosage: 10 MG, QD
     Route: 048
     Dates: start: 200707, end: 20120110
  2. CALCIUM [Suspect]
     Active Substance: CALCIUM
     Indication: SEIZURE
  3. PHOSPHORUS [Suspect]
     Active Substance: PHOSPHORUS
     Indication: SEIZURE
  4. CALCIUM [Suspect]
     Active Substance: CALCIUM
     Indication: MUSCULOSKELETAL CHEST PAIN
     Dosage: UNK
     Route: 065
     Dates: start: 2012
  5. ENTECAVIR. [Suspect]
     Active Substance: ENTECAVIR
     Indication: HEPATITIS B
     Dosage: UNK
     Route: 048
     Dates: start: 20120110
  6. PHOSPHORUS [Suspect]
     Active Substance: PHOSPHORUS
     Indication: MUSCULOSKELETAL CHEST PAIN
     Dosage: UNK
     Route: 065
     Dates: start: 2012

REACTIONS (8)
  - Osteomalacia [Unknown]
  - Asthenia [Recovering/Resolving]
  - Weight increased [Unknown]
  - Hypophosphataemia [Recovering/Resolving]
  - Seizure [Unknown]
  - Musculoskeletal chest pain [Unknown]
  - Costochondritis [Unknown]
  - Tendonitis [Unknown]

NARRATIVE: CASE EVENT DATE: 200909
